FAERS Safety Report 5927110-1 (Version None)
Quarter: 2008Q4

REPORT INFORMATION
  Report Type: 
  Country: None (occurrence: None)
  Receive Date: 20081022
  Receipt Date: 20081014
  Transmission Date: 20090506
  Serious: Yes (Hospitalization)
  Sender: FDA-Public Use
  Company Number: US-ROXANE LABORATORIES, INC.-2008-RO-00128RO

PATIENT
  Age: 54 Year
  Sex: Male

DRUGS (8)
  1. LITHIUM CARBONATE [Suspect]
  2. ATENOLOL [Suspect]
  3. GABAPENTIN [Suspect]
  4. ATROPINE [Concomitant]
     Indication: SINUS ARREST
  5. ATROPINE [Concomitant]
     Indication: NODAL RHYTHM
  6. INOTROPIC AGENT [Concomitant]
     Indication: SINUS ARREST
     Route: 042
  7. INOTROPIC AGENT [Concomitant]
     Indication: NODAL RHYTHM
  8. ANTI-HYPERTENSIVE AGENT [Concomitant]
     Indication: HYPERTENSION

REACTIONS (7)
  - BRADYCARDIA [None]
  - CARDIOTOXICITY [None]
  - NODAL RHYTHM [None]
  - PRESYNCOPE [None]
  - RENAL FAILURE ACUTE [None]
  - SINUS ARREST [None]
  - THERAPEUTIC AGENT TOXICITY [None]
